FAERS Safety Report 10258651 (Version 1)
Quarter: 2014Q2

REPORT INFORMATION
  Report Type: Spontaneous
  Country: FR (occurrence: None)
  Receive Date: 20140623
  Receipt Date: 20140623
  Transmission Date: 20141212
  Serious: Yes (Hospitalization)
  Sender: FDA-Public Use
  Company Number: SYM-2014-22127

PATIENT
  Age: 23 Year
  Sex: Female

DRUGS (3)
  1. FLAGYL [Suspect]
     Indication: TOOTH ABSCESS
     Route: 048
     Dates: start: 20140429, end: 20140503
  2. AMOXICILLIN (AMOXICILLIN) [Suspect]
     Indication: TOOTH ABSCESS
     Route: 048
     Dates: start: 20140429, end: 20140503
  3. CILEST [Concomitant]

REACTIONS (5)
  - Generalised tonic-clonic seizure [None]
  - Petit mal epilepsy [None]
  - Eye movement disorder [None]
  - Muscle rigidity [None]
  - Loss of consciousness [None]
